FAERS Safety Report 15647992 (Version 1)
Quarter: 2018Q4

REPORT INFORMATION
  Report Type: Spontaneous
  Country: US (occurrence: US)
  Receive Date: 20181122
  Receipt Date: 20181122
  Transmission Date: 20190205
  Serious: Yes (Other)
  Sender: FDA-Public Use
  Company Number: US-SA-2018SA016409

PATIENT
  Age: 57 Year
  Sex: Female
  Weight: 107 kg

DRUGS (15)
  1. CYTOXAN [Concomitant]
     Active Substance: CYCLOPHOSPHAMIDE
     Dosage: 98 MG, QCY
  2. PROZAC [Concomitant]
     Active Substance: FLUOXETINE HYDROCHLORIDE
     Dosage: UNK
     Dates: start: 1987
  3. LYRICA [Concomitant]
     Active Substance: PREGABALIN
     Dosage: UNK
     Dates: start: 2005, end: 2010
  4. TAXOTERE [Suspect]
     Active Substance: DOCETAXEL
     Indication: BREAST CANCER FEMALE
     Dosage: 147 MG, Q3W
     Route: 042
     Dates: start: 20100825, end: 20100825
  5. TAXOTERE [Suspect]
     Active Substance: DOCETAXEL
     Dosage: 147 MG, Q3W
     Route: 042
     Dates: start: 20101208, end: 20101208
  6. ADRIAMYCIN [Concomitant]
     Active Substance: DOXORUBICIN HYDROCHLORIDE
     Dosage: 98 MG, QCY
     Dates: start: 20101208
  7. COZAAR [Concomitant]
     Active Substance: LOSARTAN POTASSIUM
     Dosage: UNK UNK, UNK
     Route: 065
     Dates: start: 1995
  8. ASPIRIN 81 [Concomitant]
     Active Substance: ASPIRIN
     Route: 065
  9. CYTOXAN [Concomitant]
     Active Substance: CYCLOPHOSPHAMIDE
     Dosage: 98 MG, QCY
     Route: 065
  10. ADRIAMYCIN [Concomitant]
     Active Substance: DOXORUBICIN HYDROCHLORIDE
     Dosage: 98 MG, UNK
     Route: 065
     Dates: start: 20100825
  11. VITAMIN D [Concomitant]
     Active Substance: CHOLECALCIFEROL
     Dosage: UNK UNK, UNK
     Route: 065
     Dates: start: 1995
  12. AMLODIPINE [Concomitant]
     Active Substance: AMLODIPINE BESYLATE
     Dosage: UNK
     Dates: start: 1996
  13. CALCIUM [Concomitant]
     Active Substance: CALCIUM
     Dosage: UNK UNK, UNK
     Route: 065
     Dates: start: 1995
  14. VERELAN PM [Concomitant]
     Active Substance: VERAPAMIL HYDROCHLORIDE
     Dosage: UNK UNK, UNK
     Route: 065
     Dates: start: 1995
  15. NEOSAR [Concomitant]
     Active Substance: CYCLOPHOSPHAMIDE

REACTIONS (2)
  - Psychological trauma [Unknown]
  - Alopecia [Recovering/Resolving]

NARRATIVE: CASE EVENT DATE: 201010
